FAERS Safety Report 8224156-8 (Version None)
Quarter: 2012Q1

REPORT INFORMATION
  Report Type: 
  Country: None (occurrence: None)
  Receive Date: 20120321
  Receipt Date: 20120313
  Transmission Date: 20120608
  Serious: Yes (Hospitalization, Disabling)
  Sender: FDA-Public Use
  Company Number: US-BAYER-2011-076761

PATIENT
  Age: 26 Year
  Sex: Female
  Weight: 61.224 kg

DRUGS (15)
  1. BUTAL-APAP [Concomitant]
     Dosage: UNK
  2. MELOXICAM [Concomitant]
     Dosage: UNK
  3. SERTRALINE HYDROCHLORIDE [Concomitant]
     Dosage: UNK
  4. YASMIN [Suspect]
     Dosage: UNK
     Dates: start: 20020101
  5. YAZ [Suspect]
     Dosage: UNK
     Dates: start: 20020101, end: 20060101
  6. YAZ [Suspect]
     Dosage: UNK
     Dates: start: 20081101, end: 20091001
  7. ZOLPIDEM TARTRATE [Concomitant]
     Dosage: UNK
  8. YASMIN [Suspect]
     Dosage: UNK
     Dates: start: 20081101, end: 20091001
  9. DROSPIRENONE AND ETHINYL ESTRADIOL [Suspect]
     Indication: CONTRACEPTION
     Dosage: UNK
     Dates: start: 20020101, end: 20060101
  10. SUMATRIPTAN [Concomitant]
     Dosage: UNK
  11. +#8220;B.C. POWDER+#8221; [Concomitant]
     Indication: HEADACHE
     Dosage: UNK
     Dates: start: 20090901
  12. CARISOPRODOL [Concomitant]
     Dosage: UNK
  13. ALPRAZOLAM [Concomitant]
     Dosage: UNK
  14. DROSPIRENONE AND ETHINYL ESTRADIOL [Suspect]
     Indication: PREMENSTRUAL SYNDROME
     Dosage: UNK
     Dates: start: 20081101, end: 20091001
  15. ANTIBIOTICS [Concomitant]
     Dosage: UNK

REACTIONS (6)
  - ABDOMINAL PAIN [None]
  - PAIN [None]
  - CHOLECYSTITIS ACUTE [None]
  - DEFORMITY [None]
  - ANXIETY [None]
  - ANHEDONIA [None]
